FAERS Safety Report 7422494-X (Version None)
Quarter: 2011Q2

REPORT INFORMATION
  Report Type: 
  Country: None (occurrence: None)
  Receive Date: 20110419
  Receipt Date: 20110408
  Transmission Date: 20111010
  Serious: No
  Sender: FDA-Public Use
  Company Number: US-BIOGENIDEC-2011BI013978

PATIENT
  Age: 60 Year
  Sex: Female

DRUGS (3)
  1. TYSABRI [Suspect]
     Indication: MULTIPLE SCLEROSIS
     Route: 042
     Dates: start: 20080205
  2. AVONEX [Concomitant]
     Indication: MULTIPLE SCLEROSIS
     Route: 030
     Dates: start: 20080201
  3. AVONEX [Concomitant]
     Route: 030
     Dates: start: 20020908

REACTIONS (2)
  - FATIGUE [None]
  - WHITE BLOOD CELL COUNT INCREASED [None]
